FAERS Safety Report 4868609-9 (Version None)
Quarter: 2005Q4

REPORT INFORMATION
  Report Type: 
  Country: None (occurrence: None)
  Receive Date: 20051223
  Receipt Date: 20051215
  Transmission Date: 20060501
  Serious: Yes (Other)
  Sender: FDA-Public Use
  Company Number: 2005169409

PATIENT
  Sex: Female

DRUGS (7)
  1. ZITHROMAX [Suspect]
     Indication: MYCOBACTERIUM AVIUM COMPLEX INFECTION
     Dosage: 250 MG (250 MG EVERY  DAY, ORAL)
     Route: 048
     Dates: start: 20050501, end: 20050609
  2. ZITHROMAX [Suspect]
     Indication: MYCOBACTERIUM AVIUM COMPLEX INFECTION
     Dosage: 250 MG (250 MG EVERY  DAY, ORAL)
     Route: 048
     Dates: start: 19970101
  3. ZITHROMAX [Suspect]
     Indication: MYCOBACTERIUM AVIUM COMPLEX INFECTION
     Dosage: 250 MG (250 MG EVERY  DAY, ORAL)
     Route: 048
     Dates: start: 20050801
  4. MYAMBUTOL [Suspect]
     Indication: MYCOBACTERIUM AVIUM COMPLEX INFECTION
     Dates: end: 19970101
  5. MYAMBUTOL [Suspect]
     Indication: MYCOBACTERIUM AVIUM COMPLEX INFECTION
     Dates: start: 20050501, end: 20050609
  6. MYAMBUTOL [Suspect]
     Indication: MYCOBACTERIUM AVIUM COMPLEX INFECTION
     Dates: start: 20050801
  7. LEVAQUIN [Suspect]
     Indication: MYCOBACTERIUM AVIUM COMPLEX INFECTION
     Dates: start: 19970101

REACTIONS (11)
  - FEELING ABNORMAL [None]
  - HALLUCINATION [None]
  - HEARING IMPAIRED [None]
  - HYPOACUSIS [None]
  - INSOMNIA [None]
  - OPTIC NEURITIS [None]
  - PERSONALITY CHANGE [None]
  - PREALBUMIN DECREASED [None]
  - PROTEIN TOTAL DECREASED [None]
  - TOOTH DISORDER [None]
  - WEIGHT FLUCTUATION [None]
